FAERS Safety Report 9722184 (Version 1)
Quarter: 2013Q4

REPORT INFORMATION
  Report Type: Report from Study
  Country: US (occurrence: US)
  Receive Date: 20131202
  Receipt Date: 20131202
  Transmission Date: 20140711
  Serious: Yes (Hospitalization)
  Sender: FDA-Public Use
  Company Number: US-ROCHE-1307008

PATIENT
  Sex: Male

DRUGS (12)
  1. PEGASYS [Suspect]
     Indication: HEPATITIS C
     Route: 065
     Dates: start: 20121001
  2. RIBAVIRIN [Suspect]
     Indication: HEPATITIS C
     Route: 065
     Dates: start: 20121001
  3. MYCOPHENOLATE MOFETIL [Suspect]
     Indication: LIVER TRANSPLANT
     Route: 065
  4. CLONAZEPAM [Suspect]
     Indication: PRODUCT USED FOR UNKNOWN INDICATION
     Route: 065
  5. RITUXAN [Suspect]
     Indication: RENAL DISORDER
     Dosage: TWO TREATMENT ONLY
     Route: 065
  6. TELAPREVIR [Suspect]
     Indication: HEPATITIS C
     Route: 065
     Dates: start: 20121001
  7. ATENOLOL [Concomitant]
     Route: 065
  8. AMLODIPINE [Concomitant]
     Route: 065
  9. PREDNISONE [Concomitant]
     Dosage: EVERY OTHER DAY ALTERNATING WITH 15MG
     Route: 065
  10. PREDNISONE [Concomitant]
     Dosage: EVERY OTHER DAY ALTERNATING WITH 10MG
     Route: 065
  11. PROAIR (UNITED STATES) [Concomitant]
     Route: 065
  12. PROCRIT [Concomitant]
     Indication: ANAEMIA

REACTIONS (12)
  - Renal disorder [Recovering/Resolving]
  - Swelling [Recovering/Resolving]
  - Fluid retention [Recovering/Resolving]
  - Ulcer haemorrhage [Recovered/Resolved]
  - Anaemia [Recovering/Resolving]
  - Diarrhoea [Recovered/Resolved]
  - Rash [Recovered/Resolved]
  - Decreased appetite [Recovered/Resolved]
  - Insomnia [Unknown]
  - Fatigue [Unknown]
  - Nasopharyngitis [Unknown]
  - Anorectal discomfort [Unknown]
